FAERS Safety Report 9163796 (Version 1)
Quarter: 2013Q1

REPORT INFORMATION
  Report Type: Spontaneous
  Country: US (occurrence: US)
  Receive Date: 20130314
  Receipt Date: 20130314
  Transmission Date: 20140127
  Serious: Yes (Other)
  Sender: FDA-Public Use
  Company Number: US-JNJFOC-20130303061

PATIENT
  Sex: Male

DRUGS (1)
  1. RISPERDAL [Suspect]
     Indication: PRODUCT USED FOR UNKNOWN INDICATION
     Route: 065
     Dates: start: 1999

REACTIONS (7)
  - Parkinson^s disease [Unknown]
  - Diabetes mellitus [Unknown]
  - Tardive dyskinesia [Unknown]
  - Cardiac disorder [Unknown]
  - Sexual dysfunction [Unknown]
  - Gynaecomastia [Unknown]
  - Weight increased [Unknown]
